FAERS Safety Report 9668597 (Version 3)
Quarter: 2013Q4

REPORT INFORMATION
  Report Type: Spontaneous
  Country: US (occurrence: US)
  Receive Date: 20131105
  Receipt Date: 20131125
  Transmission Date: 20140711
  Serious: Yes (Hospitalization, Disabling, Other)
  Sender: FDA-Public Use
  Company Number: US-009507513-1311USA001217

PATIENT
  Age: 65 Year
  Sex: Male
  Weight: 73.47 kg

DRUGS (7)
  1. JANUVIA [Suspect]
     Indication: TYPE 2 DIABETES MELLITUS
     Dosage: 100 MG, QD
     Route: 048
     Dates: start: 20130813, end: 20131015
  2. GLYBURIDE [Concomitant]
     Dosage: UNK
     Dates: start: 20130813
  3. LOSARTAN POTASSIUM AND HYDROCHLOROTHIAZIDE TABLETS [Concomitant]
     Dosage: UNK
     Route: 048
     Dates: start: 20130813
  4. PRAVASTATIN SODIUM [Concomitant]
     Dosage: UNK
     Dates: start: 20130813
  5. ANTARA [Concomitant]
     Dosage: UNK
     Dates: start: 20130813
  6. HYDROCHLOROTHIAZIDE [Concomitant]
     Dosage: UNK
     Dates: start: 20130813
  7. BENICAR [Concomitant]
     Dosage: UNK
     Dates: start: 20130813

REACTIONS (2)
  - Chronic myelomonocytic leukaemia [Not Recovered/Not Resolved]
  - Hypoglycaemia [Recovered/Resolved]
